FAERS Safety Report 10507434 (Version 1)
Quarter: 2014Q4

REPORT INFORMATION
  Report Type: Spontaneous
  Country: US (occurrence: None)
  Receive Date: 20141008
  Receipt Date: 20141008
  Transmission Date: 20150528
  Serious: Yes (Hospitalization)
  Sender: FDA-Public Use
  Company Number: None

PATIENT
  Age: 69 Year
  Sex: Male
  Weight: 81.8 kg

DRUGS (2)
  1. CARBOPLATIN. [Suspect]
     Active Substance: CARBOPLATIN
     Indication: GLIOBLASTOMA
     Dosage: AUC 6 DAY 2 IV
     Route: 042
     Dates: start: 20140612
  2. BEVACIZUMAB [Suspect]
     Active Substance: BEVACIZUMAB
     Indication: GLIOBLASTOMA
     Dosage: 10 MG/KG  DAY 1 +15 IV
     Route: 042
     Dates: start: 20140529

REACTIONS (2)
  - Hemiparesis [None]
  - Fall [None]

NARRATIVE: CASE EVENT DATE: 20141003
